FAERS Safety Report 4290227-4 (Version None)
Quarter: 2004Q1

REPORT INFORMATION
  Report Type: 
  Country: None (occurrence: None)
  Receive Date: 20040126
  Receipt Date: 20030908
  Transmission Date: 20041129
  Serious: No
  Sender: FDA-Public Use
  Company Number: USA030536275

PATIENT
  Age: 86 Year
  Sex: Female
  Weight: 57 kg

DRUGS (11)
  1. EVISTA [Suspect]
  2. FORTEO [Suspect]
     Indication: FEMUR FRACTURE
     Dosage: 20 UG/DAY
     Dates: start: 20030801
  3. FORTEO [Suspect]
     Indication: LOWER LIMB FRACTURE
     Dosage: 20 UG/DAY
     Dates: start: 20030801
  4. FORTEO [Suspect]
     Indication: OSTEOPOROSIS
     Dosage: 20 UG/DAY
     Dates: start: 20030801
  5. VITAMIN D [Concomitant]
  6. CALCIUM [Concomitant]
  7. TRICOR [Concomitant]
  8. ATENOLOL [Concomitant]
  9. ASPIRIN [Concomitant]
  10. PLENDIL [Concomitant]
  11. MULTI-VITAMIN [Concomitant]

REACTIONS (9)
  - CONTUSION [None]
  - DIARRHOEA [None]
  - DIZZINESS [None]
  - DRUG SPECIFIC ANTIBODY PRESENT [None]
  - FEMUR FRACTURE [None]
  - INJECTION SITE ERYTHEMA [None]
  - INJECTION SITE HAEMORRHAGE [None]
  - NERVOUSNESS [None]
  - SCRATCH [None]
